FAERS Safety Report 18816372 (Version 1)
Quarter: 2021Q1

REPORT INFORMATION
  Report Type: Spontaneous
  Country: CA (occurrence: CA)
  Receive Date: 20210201
  Receipt Date: 20210201
  Transmission Date: 20210419
  Serious: Yes (Death, Hospitalization)
  Sender: FDA-Public Use
  Company Number: CA-ABBVIE-21K-028-3755031-00

PATIENT
  Age: 64 Year
  Sex: Male
  Weight: 70 kg

DRUGS (5)
  1. DEXAMETHASONE. [Suspect]
     Active Substance: DEXAMETHASONE
     Indication: CHRONIC LYMPHOCYTIC LEUKAEMIA
     Route: 048
  2. METRONIDAZOLE;MICONAZOLE NITRATE [Concomitant]
     Indication: DIVERTICULITIS
  3. CIPROFLOXACIN HYDROCHLORIDE. [Concomitant]
     Active Substance: CIPROFLOXACIN HYDROCHLORIDE
     Indication: URINARY TRACT DISORDER
  4. CIPROFLOXACIN HYDROCHLORIDE. [Concomitant]
     Active Substance: CIPROFLOXACIN HYDROCHLORIDE
     Indication: ASTHENIA
  5. IBRUTINIB [Suspect]
     Active Substance: IBRUTINIB
     Indication: CHRONIC LYMPHOCYTIC LEUKAEMIA
     Route: 048

REACTIONS (6)
  - Off label use [Unknown]
  - Pneumonia [Unknown]
  - Inappropriate schedule of product administration [Unknown]
  - Acute kidney injury [Fatal]
  - Cerebral disorder [Unknown]
  - Septic shock [Unknown]
